FAERS Safety Report 5256165-5 (Version None)
Quarter: 2007Q1

REPORT INFORMATION
  Report Type: 
  Country: None (occurrence: None)
  Receive Date: 20070306
  Receipt Date: 20070222
  Transmission Date: 20070707
  Serious: Yes (Hospitalization)
  Sender: FDA-Public Use
  Company Number: PHHO2007CL03638

PATIENT
  Age: 22 Year
  Sex: Female

DRUGS (1)
  1. ZELMAC / HTF 919A [Suspect]
     Indication: CONSTIPATION
     Route: 048
     Dates: start: 20070101

REACTIONS (2)
  - APPENDICECTOMY [None]
  - APPENDICITIS [None]
